FAERS Safety Report 8453728-0 (Version None)
Quarter: 2012Q2

REPORT INFORMATION
  Report Type: 
  Country: None (occurrence: None)
  Receive Date: 20120620
  Receipt Date: 20120614
  Transmission Date: 20120825
  Serious: Yes (Death, Hospitalization)
  Sender: FDA-Public Use
  Company Number: DE-ACTELION-A-US2012-63393

PATIENT

DRUGS (2)
  1. VENTAVIS [Suspect]
     Indication: PULMONARY HYPERTENSION
     Dosage: UNK
     Route: 055
  2. TRACLEER [Suspect]
     Indication: PULMONARY HYPERTENSION
     Route: 048

REACTIONS (11)
  - FLUID OVERLOAD [None]
  - SOMNOLENCE [None]
  - COUGH [None]
  - DYSPNOEA [None]
  - GASTROOESOPHAGEAL REFLUX DISEASE [None]
  - JUGULAR VEIN DISTENSION [None]
  - PULMONARY HYPERTENSION [None]
  - NIGHT SWEATS [None]
  - RIGHT VENTRICULAR FAILURE [None]
  - CYANOSIS [None]
  - OEDEMA PERIPHERAL [None]
